FAERS Safety Report 21273884 (Version 1)
Quarter: 2022Q3

REPORT INFORMATION
  Report Type: Spontaneous
  Country: US (occurrence: None)
  Receive Date: 20220830
  Receipt Date: 20220830
  Transmission Date: 20221026
  Serious: No
  Sender: FDA-Public Use
  Company Number: None

PATIENT
  Age: 92 Year
  Sex: Female

DRUGS (2)
  1. LOSARTAN POTASSIUM [Suspect]
     Active Substance: LOSARTAN POTASSIUM
     Dates: start: 20220518
  2. COZAAR [Suspect]
     Active Substance: LOSARTAN POTASSIUM

REACTIONS (2)
  - Oral discomfort [None]
  - Wrong technique in product usage process [None]

NARRATIVE: CASE EVENT DATE: 20220830
